FAERS Safety Report 6551890-8 (Version None)
Quarter: 2010Q1

REPORT INFORMATION
  Report Type: 
  Country: None (occurrence: None)
  Receive Date: 20100120
  Receipt Date: 20100107
  Transmission Date: 20100710
  Serious: Yes (Disabling, Other)
  Sender: FDA-Public Use
  Company Number: CAP10000017

PATIENT
  Age: 79 Year
  Sex: Female
  Weight: 72 kg

DRUGS (7)
  1. ACTONEL [Suspect]
     Dosage: 35 MG, 1 WEEK, ORAL
     Route: 048
  2. ALTACE (RAMIPRIL) CAPSULE [Concomitant]
  3. ATENOLOL [Concomitant]
  4. HYDROCHLOROTHIAZIDE [Concomitant]
  5. NORVASC [Concomitant]
  6. PLAVIX [Concomitant]
  7. DIDROCAL (ETIDRONATE DISODIUM/CALCIUM CARBONATE0 CYCLICAL400/1250 MG [Suspect]

REACTIONS (1)
  - STRESS FRACTURE [None]
